FAERS Safety Report 8932028 (Version 1)
Quarter: 2012Q4

REPORT INFORMATION
  Report Type: Report from Study
  Country: VE (occurrence: VE)
  Receive Date: 20121128
  Receipt Date: 20121128
  Transmission Date: 20130627
  Serious: Yes (Death, Hospitalization, Other)
  Sender: FDA-Public Use
  Company Number: VE-PFIZER INC-2011177130

PATIENT
  Age: 65 Year
  Sex: Male

DRUGS (9)
  1. LIPITOR [Suspect]
     Indication: INFARCTION
     Dosage: 40 mg, 1x/day
     Route: 048
     Dates: start: 20070915
  2. AMOXICILIN [Concomitant]
     Dosage: 20 mg, UNK
     Route: 048
  3. CARVEDILOL [Concomitant]
     Dosage: 6.25 mg, UNK
     Route: 048
  4. ESPIRONOLACTONA [Concomitant]
     Dosage: 25 mg, UNK
     Route: 048
  5. FOLIC ACID [Concomitant]
     Dosage: 5 mg, UNK
     Route: 048
  6. OMEPRAZOLE [Concomitant]
     Dosage: 20 mg, UNK
     Route: 048
  7. COLIOPAN [Concomitant]
     Dosage: 300 mg, UNK
     Route: 048
  8. ACETAMINOPHEN [Concomitant]
     Dosage: 500 mg, UNK
     Route: 048
  9. DIGOXINA [Concomitant]
     Dosage: 0.25 mg, UNK
     Route: 048

REACTIONS (4)
  - Death [Fatal]
  - Infarction [Recovered/Resolved]
  - Mobility decreased [Recovered/Resolved]
  - Obstructive uropathy [Not Recovered/Not Resolved]
